FAERS Safety Report 21842156 (Version 1)
Quarter: 2023Q1

REPORT INFORMATION
  Report Type: Spontaneous
  Country: US (occurrence: None)
  Receive Date: 20230110
  Receipt Date: 20230110
  Transmission Date: 20230417
  Serious: Yes (Hospitalization, Other)
  Sender: FDA-Public Use
  Company Number: US-INFO-20230001

PATIENT
  Age: 27 Year
  Sex: Female

DRUGS (17)
  1. LEVOFLOXACIN [Suspect]
     Active Substance: LEVOFLOXACIN
     Indication: Renal graft infection
  2. LEVOFLOXACIN [Suspect]
     Active Substance: LEVOFLOXACIN
     Indication: Renal graft infection
  3. VALACYCLOVIR HYDROCHLORIDE [Concomitant]
     Active Substance: VALACYCLOVIR HYDROCHLORIDE
     Indication: Herpes zoster
  4. TACROLIMUS [Concomitant]
     Active Substance: TACROLIMUS
     Indication: Prophylaxis against transplant rejection
     Dosage: EVENING
  5. TACROLIMUS [Concomitant]
     Active Substance: TACROLIMUS
     Indication: Prophylaxis against transplant rejection
     Dosage: MORNING
  6. PREDNISOLONE [Concomitant]
     Active Substance: PREDNISOLONE
     Indication: Prophylaxis against transplant rejection
  7. CARVEDILOL [Concomitant]
     Active Substance: CARVEDILOL
  8. LISINOPRIL [Concomitant]
     Active Substance: LISINOPRIL
  9. CHOLECALCIFEROL [Concomitant]
     Active Substance: CHOLECALCIFEROL
  10. FOLATE SODIUM [Concomitant]
     Active Substance: FOLATE SODIUM
     Dosage: 1 TABLET DAILY
  11. CALCIUM CARBONATE [Concomitant]
     Active Substance: CALCIUM CARBONATE
     Dosage: WITH MEALS
  12. CALCIUM CARBONATE [Concomitant]
     Active Substance: CALCIUM CARBONATE
     Dosage: BEDTIME
  13. SEVELAMER [Concomitant]
     Active Substance: SEVELAMER
     Dosage: WITH MEALS
  14. DARBEPOETIN ALFA [Concomitant]
     Active Substance: DARBEPOETIN ALFA
     Route: 040
  15. IRON SUCROSE [Concomitant]
     Active Substance: IRON SUCROSE
     Route: 040
  16. PARICALCITOL [Concomitant]
     Active Substance: PARICALCITOL
     Dosage: WITH EACH DIALYSIS TREATMENT
     Route: 040
  17. ETELCALCETIDE [Concomitant]
     Active Substance: ETELCALCETIDE
     Dosage: WITH EACH DIALYSIS TREATMENT
     Route: 040

REACTIONS (2)
  - Pemphigoid [Recovered/Resolved]
  - Overdose [Recovered/Resolved]
